FAERS Safety Report 7230955-1 (Version None)
Quarter: 2011Q1

REPORT INFORMATION
  Report Type: 
  Country: None (occurrence: None)
  Receive Date: 20110118
  Receipt Date: 20110114
  Transmission Date: 20110831
  Serious: Yes (Hospitalization)
  Sender: FDA-Public Use
  Company Number: AU-ROCHE-745603

PATIENT
  Sex: Female
  Weight: 76 kg

DRUGS (4)
  1. PREDNISOLONE [Concomitant]
     Indication: INTERSTITIAL GRANULOMATOUS DERMATITIS
     Route: 048
     Dates: start: 20071009
  2. ACTEMRA [Suspect]
     Dosage: RE-STARTED ON 22 NOV 2010
     Route: 042
  3. ACTEMRA [Suspect]
     Indication: RHEUMATOID ARTHRITIS
     Dosage: INFUSION
     Route: 042
     Dates: start: 20100329, end: 20101018
  4. CALTRATE + D [Suspect]
     Indication: OSTEOPOROSIS
     Dosage: DOSE: 600+400 U DAILY
     Route: 048
     Dates: start: 20040901, end: 20101008

REACTIONS (1)
  - HYPERCALCAEMIA [None]
